FAERS Safety Report 9710237 (Version 3)
Quarter: 2014Q1

REPORT INFORMATION
  Report Type: Spontaneous
  Country: US (occurrence: US)
  Receive Date: 20131126
  Receipt Date: 20140210
  Transmission Date: 20141002
  Serious: Yes (Other)
  Sender: FDA-Public Use
  Company Number: US-JNJFOC-20131107127

PATIENT
  Sex: Male
  Weight: 83.46 kg

DRUGS (23)
  1. DURAGESIC [Suspect]
     Indication: PAIN MANAGEMENT
     Route: 062
  2. DURAGESIC [Suspect]
     Indication: PAIN MANAGEMENT
     Route: 062
     Dates: start: 201310, end: 201310
  3. DURAGESIC [Suspect]
     Indication: PAIN MANAGEMENT
     Route: 062
     Dates: start: 20130401
  4. DURAGESIC [Suspect]
     Indication: MONONEUROPATHY MULTIPLEX
     Route: 062
     Dates: start: 20130401
  5. DURAGESIC [Suspect]
     Indication: MONONEUROPATHY MULTIPLEX
     Route: 062
  6. DURAGESIC [Suspect]
     Indication: MONONEUROPATHY MULTIPLEX
     Route: 062
     Dates: start: 201310, end: 201310
  7. CELEBREX [Concomitant]
     Indication: ANTIINFLAMMATORY THERAPY
     Route: 048
     Dates: start: 20120802
  8. CELEBREX [Concomitant]
     Indication: MONONEUROPATHY MULTIPLEX
     Route: 048
     Dates: start: 20120802
  9. ATORVASTATIN [Concomitant]
     Indication: BLOOD CHOLESTEROL INCREASED
     Route: 048
     Dates: start: 2012
  10. TOPROL [Concomitant]
     Indication: HYPERTENSION
     Route: 048
     Dates: start: 2012
  11. BENAZEPRIL [Concomitant]
     Indication: BALANCE DISORDER
     Route: 065
     Dates: start: 2012
  12. HUMALOG [Concomitant]
     Indication: DIABETES MELLITUS
     Route: 058
     Dates: start: 2011
  13. LANTUS [Concomitant]
     Indication: DIABETES MELLITUS
     Route: 058
     Dates: start: 2011
  14. LYRICA [Concomitant]
     Indication: NEUROPATHY PERIPHERAL
     Route: 048
     Dates: start: 20110516
  15. LYRICA [Concomitant]
     Indication: MONONEUROPATHY MULTIPLEX
     Route: 048
     Dates: start: 20110516
  16. AMITRIPTYLINE [Concomitant]
     Indication: SLEEP DISORDER
     Route: 048
     Dates: start: 20120119
  17. CLONAZEPAM [Concomitant]
     Indication: BALANCE DISORDER
     Route: 048
     Dates: start: 2013
  18. CLONAZEPAM [Concomitant]
     Indication: DEPRESSION
     Route: 048
     Dates: start: 2013
  19. NEXIUM [Concomitant]
     Indication: GASTROOESOPHAGEAL REFLUX DISEASE
     Route: 048
     Dates: start: 2013
  20. NEXIUM [Concomitant]
     Indication: GASTROOESOPHAGEAL REFLUX DISEASE
     Route: 048
     Dates: start: 2013
  21. VITAMIN B12 [Concomitant]
     Indication: BONE DISORDER
     Route: 048
     Dates: start: 2013
  22. VITAMIN D3 [Concomitant]
     Indication: BONE DENSITY ABNORMAL
     Route: 048
     Dates: start: 2013
  23. NUCYNTA [Concomitant]
     Indication: BREAKTHROUGH PAIN
     Route: 048
     Dates: start: 20130813

REACTIONS (4)
  - Drug ineffective [Recovered/Resolved with Sequelae]
  - Drug withdrawal syndrome [Recovered/Resolved]
  - Inappropriate schedule of drug administration [Recovered/Resolved]
  - Product quality issue [Unknown]
